FAERS Safety Report 13880463 (Version 1)
Quarter: 2017Q3

REPORT INFORMATION
  Report Type: Spontaneous
  Country: FR (occurrence: FR)
  Receive Date: 20170818
  Receipt Date: 20170818
  Transmission Date: 20171127
  Serious: Yes (Hospitalization)
  Sender: FDA-Public Use
  Company Number: FR-009507513-1708FRA005418

PATIENT
  Sex: Male

DRUGS (6)
  1. MIANSERIN HYDROCHLORIDE [Concomitant]
     Active Substance: MIANSERIN HYDROCHLORIDE
     Dosage: 30 (UNITS UNSPECIFIED)
  2. DAFALGAN [Concomitant]
     Active Substance: ACETAMINOPHEN
     Dosage: 0-0-1
  3. KEYTRUDA [Suspect]
     Active Substance: PEMBROLIZUMAB
     Dosage: 150 MG (2 MG/KG), ONCE (DELAYED BY 15 DAYS FROM THE ORIGINAL THERAPY FREQUENCY)
     Route: 042
     Dates: start: 20170518, end: 20170518
  4. ELIQUIS [Concomitant]
     Active Substance: APIXABAN
     Dosage: 2.5 (UNITS UNSPECIFIED): 1-0-1
  5. FENOFIBRATE. [Concomitant]
     Active Substance: FENOFIBRATE
     Dosage: 67 MG: 0-0-1
  6. KEYTRUDA [Suspect]
     Active Substance: PEMBROLIZUMAB
     Dosage: 150 MG (2MG/KG), CYCLICAL (CYCLE 1 TO CYCLE 25)
     Route: 042
     Dates: start: 20151007, end: 20170412

REACTIONS (2)
  - Pemphigoid [Unknown]
  - Oral herpes [Unknown]

NARRATIVE: CASE EVENT DATE: 2017
